FAERS Safety Report 8555700-9 (Version None)
Quarter: 2012Q3

REPORT INFORMATION
  Report Type: 
  Country: None (occurrence: None)
  Receive Date: 20120801
  Receipt Date: 20120724
  Transmission Date: 20120928
  Serious: Yes (Other)
  Sender: FDA-Public Use
  Company Number: BR-AMGEN-BRASP2012047268

PATIENT
  Age: 45 Year
  Sex: Female
  Weight: 62 kg

DRUGS (4)
  1. ENBREL [Suspect]
     Indication: RHEUMATOID ARTHRITIS
     Dosage: 50 MG, 1X/WEEK
     Route: 058
     Dates: start: 20111222
  2. FOLIC ACID [Concomitant]
  3. METHOTREXATE [Concomitant]
  4. VASOPRIL /BRA/ [Concomitant]

REACTIONS (3)
  - OCULAR HYPERAEMIA [None]
  - PAIN [None]
  - VULVAL ABSCESS [None]
